FAERS Safety Report 10113486 (Version 1)
Quarter: 2014Q2

REPORT INFORMATION
  Report Type: Spontaneous
  Country: US (occurrence: US)
  Receive Date: 20140425
  Receipt Date: 20140425
  Transmission Date: 20141212
  Serious: Yes (Other)
  Sender: FDA-Public Use
  Company Number: US-BAYER-2014-059702

PATIENT
  Age: 30 Year
  Sex: Female
  Weight: 80 kg

DRUGS (3)
  1. YASMIN [Suspect]
     Dosage: UNK
     Route: 048
  2. HYDROQUINONE [Concomitant]
     Indication: PSORIASIS
  3. TYLENOL WITH CODEINE [Concomitant]
     Dosage: 2 DOSE EVERY SIX HOUR

REACTIONS (1)
  - Deep vein thrombosis [None]
